FAERS Safety Report 20553571 (Version 3)
Quarter: 2022Q1

REPORT INFORMATION
  Report Type: Spontaneous
  Country: US (occurrence: US)
  Receive Date: 20220304
  Receipt Date: 20220322
  Transmission Date: 20220423
  Serious: Yes (Other)
  Sender: FDA-Public Use
  Company Number: US-PFIZER INC-202200269541

PATIENT
  Age: 70 Year
  Sex: Female

DRUGS (3)
  1. IBRANCE [Suspect]
     Active Substance: PALBOCICLIB
     Dosage: UNK
     Dates: start: 20220202
  2. IBRANCE [Suspect]
     Active Substance: PALBOCICLIB
     Dosage: 125 MG, ALTERNATE DAY, (EVERY OTHER DAY)
     Dates: start: 20220209
  3. IBRANCE [Suspect]
     Active Substance: PALBOCICLIB
     Dosage: UNK (ADJUSTED TO EVERY OTHER DAY INSTEAD OF DAILY FOR 3 WEEKS INSTEAD OF DAILY FOR 3 WEEKS)
     Dates: start: 20220210

REACTIONS (6)
  - Neutropenia [Unknown]
  - Dizziness [Unknown]
  - Energy increased [Unknown]
  - White blood cell count decreased [Unknown]
  - Nausea [Unknown]
  - Stomatitis [Unknown]

NARRATIVE: CASE EVENT DATE: 20220201
